FAERS Safety Report 6192773-5 (Version None)
Quarter: 2009Q2

REPORT INFORMATION
  Report Type: 
  Country: None (occurrence: None)
  Receive Date: 20090518
  Receipt Date: 20080929
  Transmission Date: 20091009
  Serious: No
  Sender: FDA-Public Use
  Company Number: US-TYCO HEALTHCARE/MALLINCKRODT-T200801594

PATIENT

DRUGS (3)
  1. ACETAMINOPHEN AND HYDROCODONE BITARTRATE [Suspect]
     Indication: BACK PAIN
     Dosage: ONE TABLET, BID
     Route: 048
     Dates: start: 20080722
  2. SEROQUEL [Concomitant]
  3. FLEXERIL [Concomitant]

REACTIONS (2)
  - DRUG INEFFECTIVE [None]
  - HEADACHE [None]
